FAERS Safety Report 6946205-7 (Version None)
Quarter: 2010Q3

REPORT INFORMATION
  Report Type: 
  Country: None (occurrence: None)
  Receive Date: 20100823
  Receipt Date: 20100813
  Transmission Date: 20110219
  Serious: Yes (Death, Hospitalization)
  Sender: FDA-Public Use
  Company Number: 104531

PATIENT
  Age: 58 Year
  Sex: Male

DRUGS (2)
  1. CISPLATIN [Suspect]
     Indication: LUNG NEOPLASM MALIGNANT
  2. VINBLASTINE SULFATE [Suspect]
     Indication: LUNG NEOPLASM MALIGNANT

REACTIONS (7)
  - ACUTE RESPIRATORY FAILURE [None]
  - DYSPNOEA [None]
  - MYOCARDIAL INFARCTION [None]
  - NEUTROPHIL COUNT DECREASED [None]
  - PRODUCTIVE COUGH [None]
  - SEPSIS PASTEURELLA [None]
  - WHITE BLOOD CELL COUNT DECREASED [None]
